FAERS Safety Report 25444227 (Version 1)
Quarter: 2025Q2

REPORT INFORMATION
  Report Type: Spontaneous
  Country: US (occurrence: US)
  Receive Date: 20250617
  Receipt Date: 20250617
  Transmission Date: 20250716
  Serious: No
  Sender: ELI LILLY AND COMPANY
  Company Number: US-ELI_LILLY_AND_COMPANY-US202506014018

PATIENT
  Sex: Female

DRUGS (1)
  1. TRULICITY [Suspect]
     Active Substance: DULAGLUTIDE
     Indication: Glucose tolerance impaired
     Dosage: 1.5 MG, WEEKLY (1/W)
     Route: 065
     Dates: start: 202411

REACTIONS (3)
  - Glycosylated haemoglobin decreased [Unknown]
  - Off label use [Unknown]
  - Accidental overdose [Unknown]

NARRATIVE: CASE EVENT DATE: 20250501
